FAERS Safety Report 8552754-0 (Version None)
Quarter: 2012Q3

REPORT INFORMATION
  Report Type: 
  Country: None (occurrence: None)
  Receive Date: 20120731
  Receipt Date: 20120725
  Transmission Date: 20120928
  Serious: Yes (Other)
  Sender: FDA-Public Use
  Company Number: PHEH2011US00497

PATIENT
  Sex: Male

DRUGS (2)
  1. ZOMETA [Suspect]
  2. AREDIA [Suspect]

REACTIONS (24)
  - PAIN [None]
  - INFECTION [None]
  - INJURY [None]
  - METASTASES TO BONE [None]
  - OSTEOMYELITIS [None]
  - RECTAL HAEMORRHAGE [None]
  - ATROPHY [None]
  - EMOTIONAL DISTRESS [None]
  - PROSTATE CANCER [None]
  - SWELLING [None]
  - CONFUSIONAL STATE [None]
  - METASTASES TO CENTRAL NERVOUS SYSTEM [None]
  - MENTAL STATUS CHANGES [None]
  - DIVERTICULUM INTESTINAL [None]
  - DYSARTHRIA [None]
  - OSTEONECROSIS OF JAW [None]
  - DEFORMITY [None]
  - GANGRENE [None]
  - SKIN CANCER [None]
  - ATELECTASIS [None]
  - CARDIOMEGALY [None]
  - METASTASES TO LIVER [None]
  - METASTATIC MALIGNANT MELANOMA [None]
  - DYSPHAGIA [None]
